FAERS Safety Report 21359813 (Version 1)
Quarter: 2022Q3

REPORT INFORMATION
  Report Type: Spontaneous
  Country: US (occurrence: US)
  Receive Date: 20220921
  Receipt Date: 20220921
  Transmission Date: 20221026
  Serious: No
  Sender: FDA-Public Use
  Company Number: US-BAYER-2022A128179

PATIENT
  Age: 35 Year
  Sex: Female
  Weight: 65.3 kg

DRUGS (10)
  1. ADEMPAS [Suspect]
     Active Substance: RIOCIGUAT
     Indication: Product used for unknown indication
     Dosage: UNK
  2. REMODULIN [Suspect]
     Active Substance: TREPROSTINIL
     Indication: Pulmonary arterial hypertension
     Dosage: 0.025 ?G/KG, CONT
     Route: 058
     Dates: start: 20211207
  3. REMODULIN [Suspect]
     Active Substance: TREPROSTINIL
     Indication: Pulmonary arterial hypertension
     Dosage: 0.029 ?G/KG, CONT
     Route: 058
  4. REMODULIN [Suspect]
     Active Substance: TREPROSTINIL
     Indication: Pulmonary arterial hypertension
     Dosage: 0.035 ?G/KG, CONT
     Route: 058
  5. REMODULIN [Suspect]
     Active Substance: TREPROSTINIL
     Indication: Pulmonary arterial hypertension
     Dosage: 0.044 ?G/KG, CONT
     Route: 058
  6. REMODULIN [Suspect]
     Active Substance: TREPROSTINIL
     Indication: Pulmonary arterial hypertension
     Dosage: 0.052 ?G/KG, CONT
     Route: 058
  7. REMODULIN [Suspect]
     Active Substance: TREPROSTINIL
     Indication: Pulmonary arterial hypertension
     Dosage: 0.072 ?G/KG, CONT
     Route: 058
  8. REMODULIN [Suspect]
     Active Substance: TREPROSTINIL
     Indication: Pulmonary arterial hypertension
     Dosage: UNK UNK, CONT
     Route: 058
  9. OPSUMIT [Concomitant]
     Active Substance: MACITENTAN
     Dosage: 10 MG
     Dates: start: 20211118
  10. ELIQUIS [Concomitant]
     Active Substance: APIXABAN
     Dosage: UNK

REACTIONS (10)
  - Gastrooesophageal reflux disease [Not Recovered/Not Resolved]
  - Dyspepsia [Not Recovered/Not Resolved]
  - Lymphorrhoea [None]
  - Chest discomfort [None]
  - Heart rate increased [Recovering/Resolving]
  - Oxygen saturation decreased [None]
  - Dyspnoea [None]
  - Malaise [None]
  - Blood iron decreased [None]
  - Blood potassium decreased [None]
